FAERS Safety Report 8553514-7 (Version None)
Quarter: 2012Q3

REPORT INFORMATION
  Report Type: 
  Country: None (occurrence: None)
  Receive Date: 20120725
  Receipt Date: 20120725
  Transmission Date: 20120928
  Serious: No
  Sender: FDA-Public Use
  Company Number: None

PATIENT
  Age: 78 Year
  Sex: Female
  Weight: 87.5442 kg

DRUGS (2)
  1. DILAUDID [Suspect]
     Indication: PAIN
     Dosage: 2 MG ONCE IV BOLUS
     Route: 040
     Dates: start: 20110822, end: 20110822
  2. MORPHINE [Suspect]
     Indication: PAIN
     Dosage: 10 MG ONCE INTRASYNOVIAL
     Route: 035
     Dates: start: 20110822, end: 20110822

REACTIONS (4)
  - RESPIRATORY RATE DECREASED [None]
  - MIOSIS [None]
  - SOMNOLENCE [None]
  - HYPOPNOEA [None]
